FAERS Safety Report 15045004 (Version 2)
Quarter: 2018Q2

REPORT INFORMATION
  Report Type: Report from Study
  Country: None (occurrence: TW)
  Receive Date: 20180621
  Receipt Date: 20180628
  Transmission Date: 20180711
  Serious: Yes (Death, Life-Threatening, Other)
  Sender: FDA-Public Use
  Company Number: TW-ABBVIE-18P-153-2388888-00

PATIENT
  Age: 70 Year
  Sex: Male
  Weight: 60 kg

DRUGS (34)
  1. ORAL FLUIDS [Concomitant]
     Route: 048
     Dates: start: 20180526, end: 20180601
  2. GRANOCYTE [Concomitant]
     Active Substance: LENOGRASTIM
     Indication: NEUTROPHIL COUNT DECREASED
     Route: 058
     Dates: start: 20180604, end: 20180604
  3. FAMOTIDINE. [Concomitant]
     Active Substance: FAMOTIDINE
     Indication: PROPHYLAXIS AGAINST GASTROINTESTINAL ULCER
     Dates: start: 20130206
  4. ACYCLOVIR SODIUM. [Concomitant]
     Active Substance: ACYCLOVIR SODIUM
     Indication: HERPES ZOSTER
     Route: 042
     Dates: start: 20180606, end: 20180606
  5. NORMAL SALINE [Concomitant]
     Active Substance: SODIUM CHLORIDE
     Indication: TUMOUR LYSIS SYNDROME
     Route: 042
     Dates: start: 20180516, end: 20180517
  6. NORMAL SALINE [Concomitant]
     Active Substance: SODIUM CHLORIDE
     Route: 042
     Dates: start: 20180606, end: 20180607
  7. ORAL FLUIDS [Concomitant]
     Indication: TUMOUR LYSIS SYNDROME
     Route: 048
     Dates: start: 20180513, end: 20180518
  8. FUROSEMIDE. [Concomitant]
     Active Substance: FUROSEMIDE
     Indication: DEEP VEIN THROMBOSIS
     Route: 048
     Dates: start: 20180118
  9. VENETOCLAX. [Suspect]
     Active Substance: VENETOCLAX
     Indication: CHRONIC LYMPHOCYTIC LEUKAEMIA
     Route: 048
     Dates: start: 20180516, end: 20180522
  10. VENETOCLAX. [Suspect]
     Active Substance: VENETOCLAX
     Route: 048
     Dates: start: 20180606, end: 20180612
  11. ACYCLOVIR SODIUM. [Concomitant]
     Active Substance: ACYCLOVIR SODIUM
     Route: 042
     Dates: start: 20180606, end: 20180608
  12. FEBURIC [Concomitant]
     Active Substance: FEBUXOSTAT
     Indication: TUMOUR LYSIS SYNDROME
     Route: 048
     Dates: start: 20180419
  13. NORMAL SALINE [Concomitant]
     Active Substance: SODIUM CHLORIDE
     Route: 042
     Dates: start: 20180613, end: 20180613
  14. TETRACYCLINE HCL [Concomitant]
     Active Substance: TETRACYCLINE HYDROCHLORIDE
     Indication: HERPES ZOSTER
     Route: 061
     Dates: start: 20180604
  15. VENETOCLAX. [Suspect]
     Active Substance: VENETOCLAX
     Route: 048
     Dates: start: 20180530, end: 20180603
  16. NORMAL SALINE [Concomitant]
     Active Substance: SODIUM CHLORIDE
     Route: 042
     Dates: start: 20180530, end: 20180531
  17. ENTECAVIR. [Concomitant]
     Active Substance: ENTECAVIR
     Indication: VIRAL HEPATITIS CARRIER
     Route: 048
     Dates: start: 20170601
  18. FOLIC ACID. [Concomitant]
     Active Substance: FOLIC ACID
     Indication: THALASSAEMIA
     Route: 048
     Dates: start: 20180510
  19. ULTRACET [Concomitant]
     Active Substance: ACETAMINOPHEN\TRAMADOL HYDROCHLORIDE
     Indication: SPONDYLOLISTHESIS
     Dosage: TRAMADOL HCL 37.5 MG/ ACETAMINOPHEN 325 MG
     Route: 048
     Dates: start: 20171129
  20. WARFARIN SODIUM. [Concomitant]
     Active Substance: WARFARIN SODIUM
     Indication: DEEP VEIN THROMBOSIS
     Route: 048
     Dates: start: 20180301
  21. VITAMIN B COMPLEX W C [Concomitant]
     Indication: THALASSAEMIA
     Dates: start: 20180510
  22. VENETOCLAX. [Suspect]
     Active Substance: VENETOCLAX
     Route: 048
     Dates: start: 20180613, end: 20180613
  23. FEBURIC [Concomitant]
     Active Substance: FEBUXOSTAT
     Indication: PROPHYLAXIS
  24. ORAL FLUIDS [Concomitant]
     Route: 048
     Dates: start: 20180609, end: 20180613
  25. FENTANYL CITRATE. [Concomitant]
     Active Substance: FENTANYL CITRATE
     Indication: PRODUCT USED FOR UNKNOWN INDICATION
  26. IMIPRAMINE HCL [Concomitant]
     Active Substance: IMIPRAMINE HYDROCHLORIDE
     Indication: HERPES ZOSTER
     Route: 048
     Dates: start: 20180607, end: 20180613
  27. NORMAL SALINE [Concomitant]
     Active Substance: SODIUM CHLORIDE
     Indication: PROPHYLAXIS
     Route: 042
     Dates: start: 20180523, end: 20180524
  28. GRANOCYTE [Concomitant]
     Active Substance: LENOGRASTIM
     Route: 058
     Dates: start: 20180607, end: 20180607
  29. VALACICLOVIR HYDROCHLORIDE [Concomitant]
     Active Substance: VALACYCLOVIR HYDROCHLORIDE
     Indication: HERPES ZOSTER
     Route: 048
     Dates: start: 20180604, end: 20180606
  30. VENETOCLAX. [Suspect]
     Active Substance: VENETOCLAX
     Route: 048
     Dates: start: 20180523, end: 20180529
  31. ORAL FLUIDS [Concomitant]
     Indication: PROPHYLAXIS
     Route: 048
     Dates: start: 20180519, end: 20180525
  32. ORAL FLUIDS [Concomitant]
     Route: 048
     Dates: start: 20180602, end: 20180608
  33. MECOBALAMIN [Concomitant]
     Active Substance: METHYLCOBALAMIN
     Indication: HERPES ZOSTER
     Route: 048
     Dates: start: 20180607, end: 20180613
  34. TRAMADOL. [Concomitant]
     Active Substance: TRAMADOL
     Indication: PRODUCT USED FOR UNKNOWN INDICATION

REACTIONS (3)
  - Sudden death [Fatal]
  - Cardiac arrest [Not Recovered/Not Resolved]
  - Hyperkalaemia [Recovered/Resolved]

NARRATIVE: CASE EVENT DATE: 20180613
